FAERS Safety Report 8790124 (Version 1)
Quarter: 2012Q4

REPORT INFORMATION
  Report Type: 
  Country: FR (occurrence: FR)
  Receive Date: 20120917
  Receipt Date: 20120917
  Transmission Date: 20130627
  Serious: Yes (Hospitalization)
  Sender: FDA-Public Use
  Company Number: FR-SANOFI-AVENTIS-2012SA064488

PATIENT
  Age: 87 Year
  Sex: Male

DRUGS (6)
  1. OFLOCET [Suspect]
     Indication: INFECTED SCAR
     Route: 065
     Dates: start: 20120507, end: 20120630
  2. LOVENOX [Suspect]
     Indication: DRUG USE FOR UNKNOWN INDICATION
     Route: 058
     Dates: start: 20120423, end: 20120701
  3. VANCOMYCINE [Suspect]
     Indication: DRUG USE FOR UNKNOWN INDICATION
     Route: 042
     Dates: start: 20120522, end: 20120705
  4. RIFAMPICIN [Suspect]
     Indication: INFECTED SCAR
     Route: 065
     Dates: start: 20120507, end: 20120705
  5. VISIPAQUE [Suspect]
     Indication: DRUG USE FOR UNKNOWN INDICATION
     Route: 042
     Dates: start: 20120627, end: 20120627
  6. PARACETAMOL [Suspect]
     Indication: DRUG USE FOR UNKNOWN INDICATION
     Route: 048
     Dates: start: 20120619, end: 20120707

REACTIONS (4)
  - Renal failure [Recovered/Resolved]
  - Rash maculo-papular [Recovered/Resolved]
  - Eosinophilia [Recovered/Resolved]
  - General physical health deterioration [None]
